FAERS Safety Report 13584430 (Version 3)
Quarter: 2018Q4

REPORT INFORMATION
  Report Type: Spontaneous
  Country: FR (occurrence: FR)
  Receive Date: 20170526
  Receipt Date: 20181221
  Transmission Date: 20190204
  Serious: Yes (Other)
  Sender: FDA-Public Use
  Company Number: FR-ACCORD-051917

PATIENT
  Age: 42 Year
  Sex: Female
  Weight: 63 kg

DRUGS (3)
  1. FLUOROURACIL ACCORD [Suspect]
     Active Substance: FLUOROURACIL
     Indication: BREAST CANCER
     Dosage: 850 MG ONCE PER CYCLE THEN 800 MG ONCE PER CYCLE
     Route: 042
     Dates: start: 20170308, end: 20170419
  2. EPIRUBICIN HYDROCHLORIDE ACCORD [Suspect]
     Active Substance: EPIRUBICIN HYDROCHLORIDE
     Indication: BREAST CANCER
     Dosage: 170 MG ONCE PER CYCLE
     Route: 042
     Dates: start: 20170308, end: 20170419
  3. ENDOXAN [Suspect]
     Active Substance: CYCLOPHOSPHAMIDE
     Indication: BREAST CANCER
     Dosage: 850 MG ONCE PER CYCLE THEN 800 MG ONCE PER CYCLE
     Route: 042
     Dates: start: 20170308, end: 20170419

REACTIONS (2)
  - Asthenia [Recovering/Resolving]
  - Muscular weakness [Recovering/Resolving]

NARRATIVE: CASE EVENT DATE: 201703
